FAERS Safety Report 10022265 (Version 1)
Quarter: 2013Q4

REPORT INFORMATION
  Report Type: Spontaneous
  Country: US (occurrence: None)
  Receive Date: 20131217
  Receipt Date: 20131217
  Transmission Date: 20140711
  Serious: Yes (Other)
  Sender: FDA-Public Use
  Company Number: 2010S1002711

PATIENT
  Age: 50 Year
  Sex: Male

DRUGS (8)
  1. FLEET ACCU PREP (90 MILLILITRES, ORAL SOLUTION) [Suspect]
     Indication: COLONOSCOPY
     Route: 048
     Dates: start: 20070124, end: 20070124
  2. VERAPAMIL HYDROCHLORIDE [Concomitant]
  3. DIAZEPAM [Concomitant]
  4. VYTORIN [Concomitant]
  5. TUSSIN DM [Concomitant]
  6. CORICIDIN HP [Concomitant]
  7. LORTAB [Concomitant]
  8. FLEXERIL [Concomitant]

REACTIONS (9)
  - Injury [None]
  - Proctalgia [None]
  - Intestinal mass [None]
  - Hydronephrosis [None]
  - Renal failure acute [None]
  - Obstructive uropathy [None]
  - Renal failure chronic [None]
  - Nephrosclerosis [None]
  - Gastrointestinal necrosis [None]
